FAERS Safety Report 11548882 (Version 1)
Quarter: 2015Q3

REPORT INFORMATION
  Report Type: Spontaneous
  Country: US (occurrence: US)
  Receive Date: 20150924
  Receipt Date: 20150924
  Transmission Date: 20151125
  Serious: No
  Sender: FDA-Public Use
  Company Number: US-INCYTE CORPORATION-2015IN001800

PATIENT
  Age: 74 Year
  Sex: Female

DRUGS (7)
  1. JAKAFI [Suspect]
     Active Substance: RUXOLITINIB
     Indication: MYELOFIBROSIS
     Dosage: 5 MG, BID
     Route: 048
     Dates: start: 20150327
  2. DILTIAZEM [Concomitant]
     Active Substance: DILTIAZEM
  3. ALLOPURINOL. [Concomitant]
     Active Substance: ALLOPURINOL
  4. HYDRALAZINE [Concomitant]
     Active Substance: HYDRALAZINE HYDROCHLORIDE
  5. INDOMETHACIN                       /00003801/ [Concomitant]
     Active Substance: INDOMETHACIN
  6. LISINOPRIL. [Concomitant]
     Active Substance: LISINOPRIL
     Dosage: UNK
     Dates: start: 20150327
  7. ATENOLOL AND CHLORTHALIDONE [Concomitant]
     Active Substance: ATENOLOL\CHLORTHALIDONE

REACTIONS (2)
  - Platelet count decreased [Unknown]
  - Gout [Unknown]

NARRATIVE: CASE EVENT DATE: 201504
